FAERS Safety Report 23148469 (Version 1)
Quarter: 2023Q4

REPORT INFORMATION
  Report Type: Spontaneous
  Country: US (occurrence: US)
  Receive Date: 20231106
  Receipt Date: 20231106
  Transmission Date: 20240109
  Serious: No
  Sender: FDA-Public Use
  Company Number: US-PFIZER INC-202300352296

PATIENT
  Sex: Female

DRUGS (1)
  1. PAXLOVID [Suspect]
     Active Substance: NIRMATRELVIR\RITONAVIR
     Indication: COVID-19 treatment
     Dosage: UNK
     Dates: start: 202308, end: 202308

REACTIONS (9)
  - Oral discomfort [Unknown]
  - Tongue discomfort [Unknown]
  - Lip disorder [Unknown]
  - Oral disorder [Unknown]
  - Candida infection [Unknown]
  - Scar [Unknown]
  - Stomatitis [Unknown]
  - Dysgeusia [Recovered/Resolved]
  - Inappropriate schedule of product administration [Unknown]

NARRATIVE: CASE EVENT DATE: 20230801
